FAERS Safety Report 6930001-0 (Version None)
Quarter: 2010Q3

REPORT INFORMATION
  Report Type: 
  Country: None (occurrence: None)
  Receive Date: 20100818
  Receipt Date: 20100808
  Transmission Date: 20110219
  Serious: Yes (Hospitalization)
  Sender: FDA-Public Use
  Company Number: US-PFIZER INC-2010099665

PATIENT
  Age: 96 Year
  Sex: Male

DRUGS (1)
  1. DOXAZOSIN MESYLATE [Suspect]
     Dosage: UNK
     Dates: start: 20100804

REACTIONS (3)
  - FALL [None]
  - INJURY [None]
  - SYNCOPE [None]
